FAERS Safety Report 6144792-2 (Version None)
Quarter: 2009Q2

REPORT INFORMATION
  Report Type: 
  Country: None (occurrence: None)
  Receive Date: 20090401
  Receipt Date: 20090401
  Transmission Date: 20091009
  Serious: Yes (Life-Threatening, Hospitalization, Disabling)
  Sender: FDA-Public Use
  Company Number: None

PATIENT
  Sex: Male
  Weight: 92.9874 kg

DRUGS (2)
  1. DIGOXIN [Suspect]
     Indication: HEART RATE IRREGULAR
     Dosage: 1 TABLET BY MOUTH DAILY
     Route: 048
     Dates: start: 20080810, end: 20081110
  2. DIGOXIN [Suspect]
     Indication: TACHYCARDIA
     Dosage: 1 TABLET BY MOUTH DAILY
     Route: 048
     Dates: start: 20080810, end: 20081110

REACTIONS (7)
  - COLD SWEAT [None]
  - DIZZINESS [None]
  - FLANK PAIN [None]
  - HEART RATE INCREASED [None]
  - NAUSEA [None]
  - VERTIGO [None]
  - VOMITING [None]
